FAERS Safety Report 10234707 (Version 1)
Quarter: 2014Q2

REPORT INFORMATION
  Report Type: Spontaneous
  Country: CA (occurrence: CA)
  Receive Date: 20140613
  Receipt Date: 20140613
  Transmission Date: 20141212
  Serious: Yes (Other)
  Sender: FDA-Public Use
  Company Number: CA-009507513-1406CAN006826

PATIENT
  Age: 67 Year
  Sex: Female

DRUGS (1)
  1. EMEND [Suspect]
     Indication: PROPHYLAXIS OF NAUSEA AND VOMITING
     Dosage: STRENGTH: TRI PACK CAPS 125MG AND 80MG DAY 2+DAY3, ONE TIME ON DAY 1
     Route: 048

REACTIONS (1)
  - Renal failure [Unknown]
